FAERS Safety Report 23796485 (Version 1)
Quarter: 2024Q2

REPORT INFORMATION
  Report Type: Spontaneous
  Country: FR (occurrence: None)
  Receive Date: 20240430
  Receipt Date: 20240430
  Transmission Date: 20240716
  Serious: Yes (Hospitalization)
  Sender: FDA-Public Use
  Company Number: 2024A096475

PATIENT
  Age: 49 Year
  Sex: Female

DRUGS (1)
  1. IMFINZI [Suspect]
     Active Substance: DURVALUMAB
     Indication: Malignant melanoma
     Dosage: 480.0MG UNKNOWN
     Dates: start: 20230810, end: 20231207

REACTIONS (1)
  - Langerhans^ cell histiocytosis [Not Recovered/Not Resolved]

NARRATIVE: CASE EVENT DATE: 20240201
